FAERS Safety Report 4729755-3 (Version None)
Quarter: 2005Q3

REPORT INFORMATION
  Report Type: 
  Country: None (occurrence: None)
  Receive Date: 20050801
  Receipt Date: 20050721
  Transmission Date: 20060218
  Serious: Yes (Hospitalization)
  Sender: FDA-Public Use
  Company Number: US-MERCK-0507USA03417

PATIENT
  Age: 66 Year
  Sex: Male
  Weight: 85 kg

DRUGS (11)
  1. VIOXX [Suspect]
     Indication: OSTEOARTHRITIS
     Route: 048
     Dates: start: 19990501, end: 19990701
  2. VIOXX [Suspect]
     Route: 048
     Dates: start: 20020401, end: 20030301
  3. VIOXX [Suspect]
     Route: 048
     Dates: start: 19990501, end: 19990701
  4. VIOXX [Suspect]
     Route: 048
     Dates: start: 20020401, end: 20030301
  5. ZESTRIL [Concomitant]
     Route: 065
  6. SOMA [Concomitant]
     Route: 065
  7. VICODIN [Concomitant]
     Route: 065
  8. ALEVE [Concomitant]
     Route: 065
     Dates: start: 19950101
  9. TYLENOL (CAPLET) [Concomitant]
     Route: 065
     Dates: start: 19950101
  10. VALIUM [Concomitant]
     Route: 065
     Dates: start: 19970101
  11. XANAX [Concomitant]
     Indication: ANXIETY
     Route: 048
     Dates: start: 20030327, end: 20050101

REACTIONS (23)
  - BALANITIS [None]
  - CHRONIC FATIGUE SYNDROME [None]
  - DEEP VEIN THROMBOSIS [None]
  - DIARRHOEA [None]
  - DYSARTHRIA [None]
  - ERECTILE DYSFUNCTION [None]
  - GASTROOESOPHAGEAL REFLUX DISEASE [None]
  - HEADACHE [None]
  - HEMIPARESIS [None]
  - HEPATIC STEATOSIS [None]
  - HIATUS HERNIA [None]
  - HYPERTENSION [None]
  - HYPOXIC ENCEPHALOPATHY [None]
  - LOSS OF CONSCIOUSNESS [None]
  - NOCTURIA [None]
  - PROSTATE CANCER [None]
  - PULMONARY EMBOLISM [None]
  - PULMONARY HYPERTENSION [None]
  - RENAL CYST [None]
  - RIGHT VENTRICULAR FAILURE [None]
  - SYNCOPE [None]
  - TRANSIENT ISCHAEMIC ATTACK [None]
  - TREMOR [None]
